FAERS Safety Report 4390646-1 (Version None)
Quarter: 2004Q2

REPORT INFORMATION
  Report Type: 
  Country: None (occurrence: None)
  Receive Date: 20040630
  Receipt Date: 20040616
  Transmission Date: 20050107
  Serious: Yes (Hospitalization)
  Sender: FDA-Public Use
  Company Number: 158325

PATIENT
  Age: 37 Year
  Sex: Male
  Weight: 108.8633 kg

DRUGS (2)
  1. AVONEX [Suspect]
     Indication: MULTIPLE SCLEROSIS
     Dosage: 30 MCG QW IM
     Route: 030
     Dates: start: 19990101, end: 20011201
  2. AMANTADINE HCL [Concomitant]

REACTIONS (18)
  - ARTHRALGIA [None]
  - ASTHENIA [None]
  - BLOOD ALKALINE PHOSPHATASE DECREASED [None]
  - BLOOD LACTATE DEHYDROGENASE INCREASED [None]
  - BRONCHITIS ACUTE [None]
  - DIVERTICULUM INTESTINAL [None]
  - HILAR LYMPHADENOPATHY [None]
  - HYPOTHYROIDISM [None]
  - LIPOGRANULOMA [None]
  - LYMPHADENOPATHY MEDIASTINAL [None]
  - MONOCYTE PERCENTAGE INCREASED [None]
  - NECROTISING GRANULOMATOUS LYMPHADENITIS [None]
  - OCCUPATIONAL PROBLEM ENVIRONMENTAL [None]
  - PLEURAL EFFUSION [None]
  - PNEUMOTHORAX [None]
  - RED BLOOD CELL SEDIMENTATION RATE INCREASED [None]
  - SPLENOMEGALY [None]
  - TRI-IODOTHYRONINE UPTAKE INCREASED [None]
